FAERS Safety Report 15597725 (Version 1)
Quarter: 2018Q4

REPORT INFORMATION
  Report Type: Spontaneous
  Country: US (occurrence: US)
  Receive Date: 20181108
  Receipt Date: 20181108
  Transmission Date: 20190205
  Serious: Yes (Hospitalization, Other)
  Sender: FDA-Public Use
  Company Number: US-GLAXOSMITHKLINE-US2018200123

PATIENT
  Sex: Male

DRUGS (1)
  1. LAMICTAL [Suspect]
     Active Substance: LAMOTRIGINE
     Indication: SEIZURE
     Dosage: 200 MG TID; 50 MG BID; Z
     Route: 048

REACTIONS (3)
  - Rehabilitation therapy [Unknown]
  - Intensive care [Unknown]
  - Brain operation [Unknown]

NARRATIVE: CASE EVENT DATE: 2012
